FAERS Safety Report 19984561 (Version 1)
Quarter: 2021Q4

REPORT INFORMATION
  Report Type: Report from Study
  Country: IT (occurrence: IT)
  Receive Date: 20211021
  Receipt Date: 20211021
  Transmission Date: 20220303
  Serious: Yes (Other)
  Sender: FDA-Public Use
  Company Number: None

PATIENT
  Age: 21 Year
  Sex: Female

DRUGS (3)
  1. TAVOR (LORAZEPAM) [Suspect]
     Active Substance: LORAZEPAM
     Dosage: 2 MG, AS NEEDED
     Route: 048
     Dates: start: 20210926, end: 20210926
  2. EN [Suspect]
     Active Substance: DELORAZEPAM
     Dosage: 2 MG, AS NEEDED
     Route: 048
     Dates: start: 20210926, end: 20210926
  3. ACETAMINOPHEN\CHLORPHENIRAMINE MALEATE [Suspect]
     Active Substance: ACETAMINOPHEN\CHLORPHENIRAMINE MALEATE
     Dosage: 6 DF, AS NEEDED
     Route: 048
     Dates: start: 20210926, end: 20210926

REACTIONS (3)
  - Drug abuse [Recovered/Resolved]
  - Vomiting [Recovered/Resolved]
  - Poisoning [Recovered/Resolved]

NARRATIVE: CASE EVENT DATE: 20210926
